FAERS Safety Report 17449531 (Version 1)
Quarter: 2020Q1

REPORT INFORMATION
  Report Type: Spontaneous
  Country: US (occurrence: US)
  Receive Date: 20200224
  Receipt Date: 20200224
  Transmission Date: 20200409
  Serious: Yes (Hospitalization)
  Sender: FDA-Public Use
  Company Number: US-HORIZON-PRE-0065-2020

PATIENT
  Age: 73 Year
  Sex: Male

DRUGS (2)
  1. PREDNISONE. [Suspect]
     Active Substance: PREDNISONE
     Indication: COLITIS ULCERATIVE
  2. MESALAMINE. [Concomitant]
     Active Substance: MESALAMINE

REACTIONS (4)
  - Herpes simplex oesophagitis [Unknown]
  - Cytomegalovirus colitis [Unknown]
  - Large intestine perforation [Unknown]
  - Clostridium difficile colitis [Unknown]
